FAERS Safety Report 9170635 (Version 1)
Quarter: 2013Q1

REPORT INFORMATION
  Report Type: Spontaneous
  Country: US (occurrence: None)
  Receive Date: 20130315
  Receipt Date: 20130315
  Transmission Date: 20140127
  Serious: Yes (Hospitalization)
  Sender: FDA-Public Use
  Company Number: None

PATIENT
  Age: 65 Year
  Sex: Female
  Weight: 53.52 kg

DRUGS (1)
  1. Z-PACK-ZITHROM [Suspect]

REACTIONS (2)
  - Dyspnoea [None]
  - Atrioventricular block [None]
